FAERS Safety Report 14033778 (Version 3)
Quarter: 2018Q1

REPORT INFORMATION
  Report Type: Spontaneous
  Country: US (occurrence: US)
  Receive Date: 20171003
  Receipt Date: 20180309
  Transmission Date: 20180508
  Serious: Yes (Other)
  Sender: FDA-Public Use
  Company Number: US-AUROBINDO-AUR-APL-2017-41182

PATIENT
  Age: 37 Year
  Sex: Male
  Weight: 83.9 kg

DRUGS (1)
  1. PARACETAMOL+DEXTROMETHORPHAN+PHENYLEPHRINE LIQUID [Suspect]
     Active Substance: ACETAMINOPHEN\DEXTROMETHORPHAN\PHENYLEPHRINE
     Indication: PRODUCT USED FOR UNKNOWN INDICATION
     Dosage: 30 ML, UNK
     Route: 065

REACTIONS (2)
  - Pancreatic enlargement [Recovered/Resolved]
  - Abdominal pain [Recovered/Resolved]
